FAERS Safety Report 24416965 (Version 1)
Quarter: 2024Q4

REPORT INFORMATION
  Report Type: Spontaneous
  Country: CN (occurrence: CN)
  Receive Date: 20241009
  Receipt Date: 20241009
  Transmission Date: 20250114
  Serious: Yes (Hospitalization, Other)
  Sender: BAXTER
  Company Number: None

PATIENT
  Age: 71 Year
  Sex: Female

DRUGS (4)
  1. CYCLOPHOSPHAMIDE [Suspect]
     Active Substance: CYCLOPHOSPHAMIDE
     Indication: Malignant mediastinal neoplasm
     Dosage: 1200 MILLIGRAM, ONCE EVERY 21 DAYS, FIRST CYCLE OF PALLIATIVE SECOND-LINE TREATMENT
     Route: 041
     Dates: start: 20240701, end: 20240701
  2. CYCLOPHOSPHAMIDE [Suspect]
     Active Substance: CYCLOPHOSPHAMIDE
     Dosage: 1200 MILLIGRAM, ONCE EVERY 21 DAYS, SECOND CYCLE OF PALLIATIVE SECOND-LINE TREATMENT
     Route: 041
     Dates: start: 20240723, end: 20240723
  3. DOXORUBICIN HYDROCHLORIDE [Suspect]
     Active Substance: DOXORUBICIN HYDROCHLORIDE
     Indication: Malignant mediastinal neoplasm
     Dosage: 60 MG, ONCE EVERY 21 DAYS, FIRST CYCLE OF PALLIATIVE SECOND-LINE TREATMENT
     Route: 041
     Dates: start: 20240701, end: 20240701
  4. DOXORUBICIN HYDROCHLORIDE [Suspect]
     Active Substance: DOXORUBICIN HYDROCHLORIDE
     Dosage: 60 MG, ONCE EVERY 21 DAYS, SECOND CYCLE OF PALLIATIVE SECOND-LINE TREATMENT
     Route: 041
     Dates: start: 20240723, end: 20240723

REACTIONS (7)
  - Malignant mediastinal neoplasm [Unknown]
  - Condition aggravated [Unknown]
  - Dermatitis [Recovering/Resolving]
  - Rash vesicular [Recovering/Resolving]
  - Rash erythematous [Recovering/Resolving]
  - Rash pruritic [Recovering/Resolving]
  - Blister rupture [Recovering/Resolving]

NARRATIVE: CASE EVENT DATE: 20240726
